FAERS Safety Report 25515711 (Version 1)
Quarter: 2025Q3

REPORT INFORMATION
  Report Type: Spontaneous
  Country: EU (occurrence: EU)
  Receive Date: 20250704
  Receipt Date: 20250704
  Transmission Date: 20251021
  Serious: Yes (Other)
  Sender: TEVA
  Company Number: EU-002147023-NVSC2025PL091788

PATIENT
  Age: 10 Year
  Sex: Female

DRUGS (3)
  1. MYCOPHENOLATE MOFETIL [Suspect]
     Active Substance: MYCOPHENOLATE MOFETIL
     Indication: Product used for unknown indication
     Route: 065
     Dates: start: 201904, end: 201910
  2. ROMIPLOSTIM [Suspect]
     Active Substance: ROMIPLOSTIM
     Indication: Product used for unknown indication
     Route: 065
     Dates: start: 202201, end: 202310
  3. ELTROMBOPAG [Suspect]
     Active Substance: ELTROMBOPAG
     Indication: Product used for unknown indication
     Route: 065
     Dates: start: 202001, end: 202112

REACTIONS (5)
  - Evans syndrome [Unknown]
  - Condition aggravated [Not Recovered/Not Resolved]
  - Oedema [Unknown]
  - Platelet count abnormal [Recovering/Resolving]
  - Treatment failure [Unknown]

NARRATIVE: CASE EVENT DATE: 20231001
